FAERS Safety Report 5519858-8 (Version None)
Quarter: 2007Q4

REPORT INFORMATION
  Report Type: 
  Country: None (occurrence: None)
  Receive Date: 20071116
  Receipt Date: 20070926
  Transmission Date: 20080405
  Serious: No
  Sender: FDA-Public Use
  Company Number: A0684389A

PATIENT
  Age: 82 Year
  Sex: Female

DRUGS (2)
  1. COREG CR [Suspect]
     Indication: HYPERTENSION
     Dosage: 20MG PER DAY
     Route: 048
     Dates: start: 20070815
  2. VITAMIN CAP [Concomitant]

REACTIONS (2)
  - FREQUENT BOWEL MOVEMENTS [None]
  - WEIGHT DECREASED [None]
